FAERS Safety Report 13642133 (Version 1)
Quarter: 2017Q2

REPORT INFORMATION
  Report Type: Spontaneous
  Country: US (occurrence: US)
  Receive Date: 20170612
  Receipt Date: 20170612
  Transmission Date: 20170830
  Serious: Yes (Disabling, Other)
  Sender: FDA-Public Use
  Company Number: None

PATIENT
  Sex: Female
  Weight: 59.02 kg

DRUGS (11)
  1. SPIRIVA [Suspect]
     Active Substance: TIOTROPIUM BROMIDE MONOHYDRATE
     Indication: CHRONIC OBSTRUCTIVE PULMONARY DISEASE
     Dosage: 2 PUFFS?
     Route: 048
  2. ASPIRIN. [Concomitant]
     Active Substance: ASPIRIN
  3. TIMOLOL (TIMOPTIC) [Concomitant]
  4. VITAMIN D [Concomitant]
     Active Substance: CHOLECALCIFEROL
  5. COD LIVER OIL [Concomitant]
     Active Substance: COD LIVER OIL
  6. SPIRIVA [Suspect]
     Active Substance: TIOTROPIUM BROMIDE MONOHYDRATE
     Indication: GLAUCOMA
     Dosage: 2 PUFFS?
     Route: 048
  7. LISINOPRIL. [Concomitant]
     Active Substance: LISINOPRIL
  8. COSOPT [Suspect]
     Active Substance: DORZOLAMIDE HYDROCHLORIDE\TIMOLOL MALEATE
     Dosage: EYE DROPS - 1 A DAY IN EACH EYE
     Route: 047
  9. EYE CAPS [Concomitant]
  10. ALEVE [Concomitant]
     Active Substance: NAPROXEN SODIUM
  11. LEVOTHYROXIN [Concomitant]
     Active Substance: LEVOTHYROXINE

REACTIONS (7)
  - Tooth loss [None]
  - Dental caries [None]
  - Tooth fracture [None]
  - Eyelid disorder [None]
  - Growth of eyelashes [None]
  - Dry mouth [None]
  - Gingival bleeding [None]
